FAERS Safety Report 25055432 (Version 1)
Quarter: 2025Q1

REPORT INFORMATION
  Report Type: Spontaneous
  Country: US (occurrence: US)
  Receive Date: 20250308
  Receipt Date: 20250308
  Transmission Date: 20250409
  Serious: No
  Sender: AMGEN
  Company Number: US-AMGEN-USASP2025043350

PATIENT
  Age: 85 Year
  Sex: Female

DRUGS (1)
  1. REPATHA [Suspect]
     Active Substance: EVOLOCUMAB
     Indication: Low density lipoprotein increased
     Dosage: 140 MILLIGRAM/ML, Q2WK
     Route: 065
     Dates: start: 20250301

REACTIONS (3)
  - Drug dose omission by device [Unknown]
  - Device difficult to use [Unknown]
  - Injection site erythema [Unknown]

NARRATIVE: CASE EVENT DATE: 20250301
